FAERS Safety Report 12269363 (Version 2)
Quarter: 2017Q2

REPORT INFORMATION
  Report Type: Report from Study
  Country: US (occurrence: US)
  Receive Date: 20160414
  Receipt Date: 20170620
  Transmission Date: 20170830
  Serious: Yes (Other)
  Sender: FDA-Public Use
  Company Number: US-JNJFOC-20160410854

PATIENT
  Age: 89 Year
  Sex: Female

DRUGS (14)
  1. METOPROLOL. [Concomitant]
     Active Substance: METOPROLOL
  2. METFORMIN [Concomitant]
     Active Substance: METFORMIN HYDROCHLORIDE
  3. CILOSTAZOL. [Concomitant]
     Active Substance: CILOSTAZOL
  4. IMBRUVICA [Suspect]
     Active Substance: IBRUTINIB
     Indication: WALDENSTROM^S MACROGLOBULINAEMIA
     Route: 048
     Dates: start: 20150805, end: 2016
  5. MYRBETRIQ [Concomitant]
     Active Substance: MIRABEGRON
  6. LISINOPRIL. [Concomitant]
     Active Substance: LISINOPRIL
  7. ZETIA [Concomitant]
     Active Substance: EZETIMIBE
  8. WARFARIN [Concomitant]
     Active Substance: WARFARIN
  9. JANUVIA [Concomitant]
     Active Substance: SITAGLIPTIN PHOSPHATE
  10. GABAPENTIN. [Concomitant]
     Active Substance: GABAPENTIN
  11. FUROSEMIDE. [Concomitant]
     Active Substance: FUROSEMIDE
  12. IMBRUVICA [Suspect]
     Active Substance: IBRUTINIB
     Indication: WALDENSTROM^S MACROGLOBULINAEMIA
     Route: 048
     Dates: start: 20160309
  13. POTASSIUM CHLORIDE. [Concomitant]
     Active Substance: POTASSIUM CHLORIDE
  14. OMEPRAZOLE. [Concomitant]
     Active Substance: OMEPRAZOLE

REACTIONS (12)
  - Pericardial effusion [Unknown]
  - Red blood cell count decreased [Unknown]
  - Vomiting [Unknown]
  - Pleural effusion [Unknown]
  - Laboratory test abnormal [Unknown]
  - Nausea [Unknown]
  - White blood cell count decreased [Unknown]
  - Weight decreased [Unknown]
  - Red blood cell count increased [Unknown]
  - Decreased appetite [Unknown]
  - Pneumothorax [Unknown]
  - White blood cell count increased [Unknown]

NARRATIVE: CASE EVENT DATE: 20170516
